FAERS Safety Report 8344940-X (Version None)
Quarter: 2012Q2

REPORT INFORMATION
  Report Type: 
  Country: None (occurrence: None)
  Receive Date: 20120508
  Receipt Date: 20120430
  Transmission Date: 20120825
  Serious: Yes (Other)
  Sender: FDA-Public Use
  Company Number: GB-MERCK-1205USA00360

PATIENT
  Age: 21 Year
  Sex: Female
  Weight: 64 kg

DRUGS (19)
  1. ACETAMINOPHEN AND CODEINE PHOSPHATE [Concomitant]
     Route: 065
     Dates: start: 20120109
  2. DOXYCYCLINE [Concomitant]
     Route: 065
     Dates: start: 20120123, end: 20120130
  3. MIGRALEVE (ACETAMINOPHEN (+) BUCLIZINE HYDROCHLORIDE (+) CODEINE PHOSP [Concomitant]
     Route: 065
     Dates: start: 20111222, end: 20120406
  4. SUMATRIPTAN [Concomitant]
     Route: 065
     Dates: start: 20120216, end: 20120217
  5. BECLOMETASON CT [Concomitant]
     Route: 065
     Dates: start: 20120109, end: 20120206
  6. CETIRIZINE HYDROCHLORIDE [Concomitant]
     Route: 065
     Dates: start: 20120403
  7. CYCLIZINE [Concomitant]
     Route: 065
     Dates: start: 20111222, end: 20120412
  8. OMEPRAZOLE [Concomitant]
     Route: 065
     Dates: start: 20111222
  9. DIAZEPAN [Concomitant]
     Route: 065
     Dates: start: 20120105
  10. AMITRIPTYLINE HYDROCHLORIDE [Concomitant]
     Route: 065
     Dates: start: 20120322
  11. DULOXETINE HYDROCHLORIDE [Concomitant]
     Route: 065
     Dates: start: 20111222
  12. NYSTATIN [Concomitant]
     Route: 065
     Dates: start: 20120123, end: 20120130
  13. SUMATRIPTAN [Concomitant]
     Route: 065
     Dates: start: 20120201, end: 20120202
  14. SUMATRIPTAN [Concomitant]
     Route: 065
     Dates: start: 20120309, end: 20120310
  15. MICONAZOLE [Concomitant]
     Route: 065
     Dates: start: 20120403, end: 20120408
  16. VENTOLIN [Concomitant]
     Route: 065
     Dates: start: 20120201
  17. MAXALT [Suspect]
     Route: 048
     Dates: start: 20120322, end: 20120323
  18. BECLOMETHASONE DIPROPIONATE [Concomitant]
     Route: 065
     Dates: start: 20120308, end: 20120405
  19. LAMOTRIGINE [Concomitant]
     Route: 065
     Dates: start: 20111222, end: 20120418

REACTIONS (2)
  - GLOSSITIS [None]
  - HYPERSENSITIVITY [None]
